FAERS Safety Report 10084471 (Version 2)
Quarter: 2014Q2

REPORT INFORMATION
  Report Type: Spontaneous
  Country: US (occurrence: AU)
  Receive Date: 20140417
  Receipt Date: 20140521
  Transmission Date: 20141212
  Serious: Yes (Death, Hospitalization, Other)
  Sender: FDA-Public Use
  Company Number: US-ASTELLAS-2014US003778

PATIENT
  Age: 76 Year
  Sex: Male
  Weight: 108 kg

DRUGS (8)
  1. XTANDI [Suspect]
     Indication: PROSTATE CANCER METASTATIC
     Route: 048
     Dates: start: 20140214
  2. PREDNISONE [Concomitant]
     Indication: PROSTATE CANCER
     Route: 048
  3. TYLENOL                            /00020001/ [Concomitant]
     Indication: PRODUCT USED FOR UNKNOWN INDICATION
     Dosage: UNK UNK, UNKNOWN FREQ.
     Route: 065
  4. ALEVE [Concomitant]
     Indication: PRODUCT USED FOR UNKNOWN INDICATION
     Dosage: 220 MG, BID AS NEEDED
     Route: 048
  5. PERCOCET                           /00446701/ [Concomitant]
     Indication: PAIN
     Dosage: 5MG-325MG, 1 EVERY 6 HOURS AS NEEDED
     Route: 048
  6. PROCHLORPERAZINE MALEATE [Concomitant]
     Indication: NAUSEA
     Dosage: 10 MG, EVERY 6 HOURS AS NEEDED
     Route: 048
  7. ZOMETA [Concomitant]
     Indication: PROSTATE CANCER
     Dosage: UNK UNK, EVERY 4 WEEKS
     Route: 065
  8. LUPRON DEPOT-4 MONTH [Concomitant]
     Indication: PRODUCT USED FOR UNKNOWN INDICATION
     Dosage: UNK UNK, OTHER-EVERY 4 MONTHS
     Route: 065

REACTIONS (2)
  - Hepatic failure [Fatal]
  - Malignant neoplasm progression [Fatal]
